FAERS Safety Report 9517266 (Version 1)
Quarter: 2013Q3

REPORT INFORMATION
  Report Type: Spontaneous
  Country: US (occurrence: US)
  Receive Date: 20130911
  Receipt Date: 20130911
  Transmission Date: 20140515
  Serious: No
  Sender: FDA-Public Use
  Company Number: US-TEVA-430721USA

PATIENT
  Age: 23 Year
  Sex: Female
  Weight: 81.72 kg

DRUGS (2)
  1. PLAN B ONE-STEP [Suspect]
     Dosage: PM
     Route: 048
     Dates: start: 20130817
  2. PLAN B ONE-STEP [Suspect]
     Dosage: MORNING
     Route: 048
     Dates: start: 20130817

REACTIONS (3)
  - Vaginal discharge [Unknown]
  - Dysmenorrhoea [Unknown]
  - Vaginal discharge [Recovered/Resolved]
